FAERS Safety Report 10368070 (Version 3)
Quarter: 2014Q3

REPORT INFORMATION
  Report Type: Spontaneous
  Country: AT (occurrence: AT)
  Receive Date: 20140807
  Receipt Date: 20140818
  Transmission Date: 20150326
  Serious: Yes (Life-Threatening, Hospitalization)
  Sender: FDA-Public Use
  Company Number: AT-BAYER-2014-110653

PATIENT
  Age: 73 Year
  Sex: Female

DRUGS (2)
  1. ULTRAVIST [Suspect]
     Active Substance: IOPROMIDE
     Indication: PULMONARY EMBOLISM
     Dosage: 80 ML, ONCE
     Route: 042
     Dates: start: 20140723, end: 20140723
  2. ULTRAVIST [Suspect]
     Active Substance: IOPROMIDE
     Indication: PULMONARY EMBOLISM
     Dosage: 80 ML, ONCE
     Route: 042
     Dates: start: 20140723, end: 20140723

REACTIONS (7)
  - Muscle spasms [Recovering/Resolving]
  - Chest discomfort [Recovering/Resolving]
  - Dizziness [Recovering/Resolving]
  - Tremor [Recovering/Resolving]
  - Abdominal pain [Recovering/Resolving]
  - Erythema [Recovering/Resolving]
  - Dyspnoea [Recovering/Resolving]

NARRATIVE: CASE EVENT DATE: 20140723
